FAERS Safety Report 7548667-3 (Version None)
Quarter: 2011Q2

REPORT INFORMATION
  Report Type: 
  Country: None (occurrence: None)
  Receive Date: 20110524
  Receipt Date: 20110215
  Transmission Date: 20111010
  Serious: No
  Sender: FDA-Public Use
  Company Number: 026868

PATIENT
  Sex: Male

DRUGS (2)
  1. CIMZIA [Suspect]
     Indication: CROHN'S DISEASE
     Dosage: (400 MG 1X/28 DAYS SUBCUTANEOUS)
     Route: 058
     Dates: start: 20101006
  2. PREDNISONE [Concomitant]

REACTIONS (6)
  - LIMB INJURY [None]
  - WOUND DRAINAGE [None]
  - WOUND INFECTION [None]
  - SINUSITIS [None]
  - EAR INFECTION [None]
  - SWELLING FACE [None]
